FAERS Safety Report 4545227-3 (Version None)
Quarter: 2004Q4

REPORT INFORMATION
  Report Type: 
  Country: None (occurrence: None)
  Receive Date: 20041222
  Receipt Date: 20040922
  Transmission Date: 20050328
  Serious: Yes (Hospitalization, Other)
  Sender: FDA-Public Use
  Company Number: USA040773036

PATIENT
  Age: 44 Year
  Sex: Female
  Weight: 80 kg

DRUGS (4)
  1. HUMULIN N [Suspect]
     Indication: DIABETES MELLITUS
     Dates: start: 19840101, end: 20030301
  2. HUMALOG [Suspect]
     Indication: DIABETES MELLITUS
     Dosage: 6 U/3 DAY
     Dates: start: 20030301
  3. HUMULIN R [Suspect]
     Indication: DIABETES MELLITUS
     Dates: start: 19840101, end: 20030301
  4. LANTUS [Concomitant]

REACTIONS (14)
  - ABNORMAL SLEEP-RELATED EVENT [None]
  - ARTHRALGIA [None]
  - BLOOD GLUCOSE DECREASED [None]
  - BLOOD GLUCOSE INCREASED [None]
  - CONVULSION [None]
  - DEHYDRATION [None]
  - HORMONE LEVEL ABNORMAL [None]
  - HYPOTHERMIA [None]
  - INSOMNIA [None]
  - MALAISE [None]
  - PAIN [None]
  - SOMNOLENCE [None]
  - STRESS SYMPTOMS [None]
  - TONGUE BITING [None]
